FAERS Safety Report 5794526-6 (Version None)
Quarter: 2008Q2

REPORT INFORMATION
  Report Type: 
  Country: None (occurrence: None)
  Receive Date: 20080626
  Receipt Date: 20080609
  Transmission Date: 20081010
  Serious: Yes (Other)
  Sender: FDA-Public Use
  Company Number: CAR-2008-026

PATIENT
  Age: 28 Year
  Sex: Female

DRUGS (1)
  1. SUCRALFATE [Suspect]
     Indication: GASTRITIS
     Dosage: 900 MG TID ORAL
     Route: 048
     Dates: start: 20071112, end: 20071204

REACTIONS (2)
  - LIVER DISORDER [None]
  - REYE'S SYNDROME [None]
